FAERS Safety Report 5011291-0 (Version None)
Quarter: 2006Q2

REPORT INFORMATION
  Report Type: 
  Country: None (occurrence: None)
  Receive Date: 20060404
  Receipt Date: 20060127
  Transmission Date: 20061013
  Serious: No
  Sender: FDA-Public Use
  Company Number: US200601000139

PATIENT
  Age: 53 Year
  Sex: Female

DRUGS (12)
  1. PROZAC [Suspect]
     Indication: DEPRESSION
     Dosage: 10 MG, DAILY (1/D)
     Dates: start: 20040101
  2. CYMBALTA [Suspect]
     Indication: DEPRESSION
     Dosage: SEE IMAGE
     Dates: start: 20051201, end: 20060101
  3. WELLBUTRIN [Concomitant]
  4. LEVOXYL [Concomitant]
  5. LAMICTAL [Concomitant]
  6. PROTONIX [Concomitant]
  7. CRESTOR [Concomitant]
  8. NIASPAN (NICOTONIC ACID) [Concomitant]
  9. XANAX /USA/ (ALPRAZOLAM) [Concomitant]
  10. GLUCOSAMINE (GLUCOSAMINE) [Concomitant]
  11. ASPIRIN [Concomitant]
  12. FISH OIL (FISH OIL) [Concomitant]

REACTIONS (7)
  - AGITATION [None]
  - FEELING ABNORMAL [None]
  - HEADACHE [None]
  - HIRSUTISM [None]
  - RASH [None]
  - SWELLING FACE [None]
  - VISUAL DISTURBANCE [None]
